FAERS Safety Report 15706038 (Version 1)
Quarter: 2018Q4

REPORT INFORMATION
  Report Type: Spontaneous
  Country: US (occurrence: US)
  Receive Date: 20181210
  Receipt Date: 20181210
  Transmission Date: 20190205
  Serious: Yes (Other)
  Sender: FDA-Public Use
  Company Number: US-LPDUSPRD-20182294

PATIENT
  Age: 73 Year
  Sex: Male

DRUGS (14)
  1. LIDOCAINE HCL INJECTION, USP (0625-25) [Suspect]
     Active Substance: LIDOCAINE HYDROCHLORIDE
     Dosage: 6 ML
     Route: 058
  2. FENTANYL. [Concomitant]
     Active Substance: FENTANYL
     Dosage: 100 MCG
     Route: 065
  3. LISINOPRIL. [Concomitant]
     Active Substance: LISINOPRIL
     Dosage: UNKNOWN
     Route: 065
  4. METOPROLOL. [Concomitant]
     Active Substance: METOPROLOL
     Dosage: UNKNOWN
     Route: 065
  5. METFORMIN [Concomitant]
     Active Substance: METFORMIN HYDROCHLORIDE
     Dosage: UNKNOWN
     Route: 065
  6. TAMSULOSIN [Concomitant]
     Active Substance: TAMSULOSIN
     Dosage: UNKNOWN
     Route: 065
  7. PROPOFOL. [Concomitant]
     Active Substance: PROPOFOL
     Dosage: 380 MG
     Route: 065
  8. GLIPIZIDE. [Concomitant]
     Active Substance: GLIPIZIDE
     Dosage: UNKNOWN
     Route: 065
  9. BUPIVACAINE. [Concomitant]
     Active Substance: BUPIVACAINE
     Dosage: 6 ML
     Route: 058
  10. ONDANSETRON INJECTION (4420-01) [Suspect]
     Active Substance: ONDANSETRON
     Dosage: UNKNOWN
     Route: 065
  11. LOPERAMIDE [Concomitant]
     Active Substance: LOPERAMIDE
     Dosage: UNKNOWN
     Route: 065
  12. PANTOPRAZOLE [Concomitant]
     Active Substance: PANTOPRAZOLE
     Dosage: UNKNOWN
     Route: 065
  13. NO DRUG NAME [Concomitant]
     Dosage: UNKNOWN (1.25 BAGS OF 750 MLS)
     Route: 050
  14. SIMVASTATIN. [Concomitant]
     Active Substance: SIMVASTATIN
     Dosage: UNKNOWN
     Route: 065

REACTIONS (9)
  - Sinus tachycardia [Unknown]
  - Muscle rigidity [Unknown]
  - Incorrect route of product administration [Unknown]
  - Incoherent [Unknown]
  - Unresponsive to stimuli [Unknown]
  - Deafness [Unknown]
  - Blood pressure increased [Unknown]
  - Toxicity to various agents [Unknown]
  - Nuchal rigidity [Unknown]
